FAERS Safety Report 24259865 (Version 1)
Quarter: 2024Q3

REPORT INFORMATION
  Report Type: Spontaneous
  Country: CN (occurrence: CN)
  Receive Date: 20240828
  Receipt Date: 20240828
  Transmission Date: 20241016
  Serious: Yes (Hospitalization)
  Sender: ROCHE
  Company Number: CN-BoehringerIngelheim-2024-BI-047835

PATIENT
  Age: 73 Year
  Sex: Male
  Weight: 90.0 kg

DRUGS (2)
  1. ALTEPLASE [Suspect]
     Active Substance: ALTEPLASE
     Indication: Thrombolysis
     Route: 042
     Dates: start: 20240814, end: 20240814
  2. ALTEPLASE [Suspect]
     Active Substance: ALTEPLASE
     Route: 042
     Dates: start: 20240814, end: 20240814

REACTIONS (6)
  - Asthma [Recovering/Resolving]
  - Blood pressure increased [Recovering/Resolving]
  - Pneumonia [Recovering/Resolving]
  - Arrhythmia [Recovering/Resolving]
  - Sleep apnoea syndrome [Recovering/Resolving]
  - Dysphoria [Recovering/Resolving]

NARRATIVE: CASE EVENT DATE: 20240814
